FAERS Safety Report 9825743 (Version 1)
Quarter: 2013Q4

REPORT INFORMATION
  Report Type: Spontaneous
  Country: US (occurrence: None)
  Receive Date: 20131101
  Receipt Date: 20131101
  Transmission Date: 20140711
  Serious: Yes (Other)
  Sender: FDA-Public Use
  Company Number: ALL1-2013-03950

PATIENT
  Age: 9 Year
  Sex: Female

DRUGS (2)
  1. INTUNIV [Suspect]
     Indication: ATTENTION DEFICIT/HYPERACTIVITY DISORDER
     Route: 048
     Dates: start: 201101
  2. FISH OIL (FISH OIL) [Concomitant]

REACTIONS (3)
  - Depression [None]
  - Disturbance in social behaviour [None]
  - Anxiety [None]
